FAERS Safety Report 18293449 (Version 1)
Quarter: 2020Q3

REPORT INFORMATION
  Report Type: Spontaneous
  Country: US (occurrence: US)
  Receive Date: 20200922
  Receipt Date: 20200922
  Transmission Date: 20201103
  Serious: No
  Sender: FDA-Public Use
  Company Number: US-DRREDDYS-USA/USA/20/0126914

PATIENT
  Age: 51 Year
  Sex: Female
  Weight: 94.5 kg

DRUGS (1)
  1. HABITROL [Suspect]
     Active Substance: NICOTINE
     Indication: TOBACCO USER
     Route: 062

REACTIONS (5)
  - Hypersomnia [Unknown]
  - Fatigue [Unknown]
  - Nicotine dependence [Unknown]
  - Stress [Unknown]
  - Treatment noncompliance [Unknown]
